FAERS Safety Report 9507438 (Version 1)
Quarter: 2013Q1

REPORT INFORMATION
  Report Type: Spontaneous
  Country: US (occurrence: None)
  Receive Date: 20130305
  Receipt Date: 20130305
  Transmission Date: 20140127
  Serious: Yes (Other)
  Sender: FDA-Public Use
  Company Number: 163-21880-12111185

PATIENT
  Age: 72 Year
  Sex: Female

DRUGS (5)
  1. REVLIMID [Suspect]
     Indication: PLASMA CELL MYELOMA
     Dosage: 10 MG, 14 IN 21 D, PO
     Route: 048
     Dates: start: 20120822
  2. DEXAMETHASONE (DEXAMETHASONIE) [Concomitant]
  3. ZOMETA (ZOLEDRONIC ACID) [Concomitant]
  4. ASPIRIN EC (ACETIYLSALICYLIC ACID) [Concomitant]
  5. MULTIVITAMIN (MULTIVITAMINS) [Concomitant]

REACTIONS (1)
  - Gastrooesophageal reflux disease [None]
